FAERS Safety Report 7213965 (Version 7)
Quarter: 2013Q2

REPORT INFORMATION
  Report Type: Report from Study
  Country: JP (occurrence: JP)
  Receive Date: 20091214
  Receipt Date: 20130417
  Transmission Date: 20140414
  Serious: Yes (Death, Life-Threatening, Hospitalization)
  Sender: FDA-Public Use
  Company Number: JP-BRISTOL-MYERS SQUIBB COMPANY-14755037

PATIENT
  Age: 58 Year
  Sex: Female
  Weight: 47.8 kg

DRUGS (12)
  1. SPRYCEL [Suspect]
     Indication: ACUTE LYMPHOCYTIC LEUKAEMIA
     Dosage: 23MAR-28APR09; 09MAY-13MAY09; 16MAY09-09JUL09.
     Route: 048
     Dates: start: 20090323, end: 20090709
  2. METHOTREXATE [Suspect]
     Indication: ACUTE LYMPHOCYTIC LEUKAEMIA
     Dosage: FORM:INJ
     Route: 042
     Dates: start: 20090428, end: 20090428
  3. CYTARABINE [Suspect]
     Indication: ACUTE LYMPHOCYTIC LEUKAEMIA
     Route: 042
     Dates: start: 20090429, end: 20090430
  4. METHYLPREDNISOLONE SODIUM SUCCINATE [Concomitant]
     Indication: ACUTE LYMPHOCYTIC LEUKAEMIA
     Dosage: 200 MG/DAY: FROM 07-JUL-2009-ONGOING FOR INFECTION.
     Route: 042
     Dates: start: 20090428, end: 20090430
  5. METHYLPREDNISOLONE SODIUM SUCCINATE [Concomitant]
     Indication: INFECTION
     Dosage: 200 MG/DAY: FROM 07-JUL-2009-ONGOING FOR INFECTION.
     Route: 042
     Dates: start: 20090428, end: 20090430
  6. CALCIUM FOLINATE [Concomitant]
     Indication: ACUTE LYMPHOCYTIC LEUKAEMIA
     Route: 042
     Dates: start: 20090430, end: 20090501
  7. DORIPENEM [Concomitant]
     Indication: INFECTION
     Dosage: INJ
     Route: 042
     Dates: start: 20090707
  8. ITRACONAZOLE [Concomitant]
     Indication: INFECTION
     Dosage: INJ
     Route: 042
     Dates: start: 20090707
  9. CIPROFLOXACIN [Concomitant]
     Indication: INFECTION
     Dosage: INJ
     Route: 042
     Dates: start: 20090707
  10. FOSCARNET [Concomitant]
     Indication: INFECTION
     Dosage: FORMULN.: INJ
     Route: 042
     Dates: start: 20090707
  11. BAKTAR [Concomitant]
     Indication: INFECTION
     Dosage: 1DF= 2 TABS; FORM: TABLET.
     Route: 048
     Dates: start: 20090707
  12. FRAGMIN [Concomitant]
     Indication: INFECTION
     Dosage: 1DF= 3700 UNIT.INJECTION
     Route: 042
     Dates: start: 20090716

REACTIONS (6)
  - Pneumonia [Fatal]
  - Blood lactate dehydrogenase increased [Not Recovered/Not Resolved]
  - White blood cell count decreased [Recovered/Resolved]
  - Platelet count decreased [Not Recovered/Not Resolved]
  - Anaemia [Not Recovered/Not Resolved]
  - Disseminated intravascular coagulation [Not Recovered/Not Resolved]
